FAERS Safety Report 5694450-3 (Version None)
Quarter: 2008Q2

REPORT INFORMATION
  Report Type: 
  Country: None (occurrence: None)
  Receive Date: 20080404
  Receipt Date: 20080325
  Transmission Date: 20081010
  Serious: Yes (Other)
  Sender: FDA-Public Use
  Company Number: PHEH2008US03120

PATIENT
  Sex: Female

DRUGS (1)
  1. GENTEAL DROPS (NVO) [Suspect]
     Dosage: UNK, UNK
     Dates: start: 20060101

REACTIONS (1)
  - EYE INFECTION [None]
